FAERS Safety Report 8595375-6 (Version None)
Quarter: 2012Q3

REPORT INFORMATION
  Report Type: 
  Country: None (occurrence: None)
  Receive Date: 20120807
  Receipt Date: 20120807
  Transmission Date: 20120928
  Serious: No
  Sender: FDA-Public Use
  Company Number: None

PATIENT
  Age: 28 Year
  Sex: Female
  Weight: 96.5 kg

DRUGS (12)
  1. ZIPRASIDONE HCL [Concomitant]
  2. IRON [Concomitant]
  3. LAMICTAL [Concomitant]
  4. DOXEPIN [Concomitant]
  5. PREVACID [Concomitant]
  6. TEMAZEPAM [Concomitant]
  7. YASMIN [Concomitant]
  8. DOXEPIN [Concomitant]
  9. CALCIUM [Concomitant]
  10. QUETIAPINE [Concomitant]
  11. LOHEXOL [Suspect]
     Indication: COMPUTERISED TOMOGRAM
     Dosage: PO
     Route: 048
     Dates: start: 20120604
  12. CLONAZEPAM [Concomitant]

REACTIONS (1)
  - PRURITUS [None]
